FAERS Safety Report 10220639 (Version 1)
Quarter: 2014Q2

REPORT INFORMATION
  Report Type: Spontaneous
  Country: US (occurrence: None)
  Receive Date: 20140605
  Receipt Date: 20140605
  Transmission Date: 20141212
  Serious: Yes (Other)
  Sender: FDA-Public Use
  Company Number: None

PATIENT
  Age: 72 Year
  Sex: Female
  Weight: 77.11 kg

DRUGS (4)
  1. GENERIC LOVAZA 1 GRAM [Suspect]
     Indication: PAIN
     Dosage: 8 GRAMS/DAILY, TWICE DAILY, TAKEN BY MOUTH
     Route: 048
     Dates: start: 20140530, end: 20140604
  2. GENERIC LOVAZA 1 GRAM [Suspect]
     Indication: NEUROPATHY PERIPHERAL
     Dosage: 8 GRAMS/DAILY, TWICE DAILY, TAKEN BY MOUTH
     Route: 048
     Dates: start: 20140530, end: 20140604
  3. GENERIC LOVAZA 1 GRAM [Suspect]
     Indication: SPINAL COLUMN STENOSIS
     Dosage: 8 GRAMS/DAILY, TWICE DAILY, TAKEN BY MOUTH
     Route: 048
     Dates: start: 20140530, end: 20140604
  4. GENERIC LOVAZA 1 GRAM [Suspect]
     Indication: SCOLIOSIS
     Dosage: 8 GRAMS/DAILY, TWICE DAILY, TAKEN BY MOUTH
     Route: 048
     Dates: start: 20140530, end: 20140604

REACTIONS (3)
  - Product substitution issue [None]
  - Pain [None]
  - Gastrointestinal disorder [None]
